FAERS Safety Report 15940535 (Version 1)
Quarter: 2019Q1

REPORT INFORMATION
  Report Type: Spontaneous
  Country: US (occurrence: US)
  Receive Date: 20190208
  Receipt Date: 20190208
  Transmission Date: 20190417
  Serious: No
  Sender: FDA-Public Use
  Company Number: US-ELI_LILLY_AND_COMPANY-US201901009433

PATIENT
  Sex: Male

DRUGS (1)
  1. HUMATROPE [Suspect]
     Active Substance: SOMATROPIN
     Indication: PRODUCT USED FOR UNKNOWN INDICATION
     Dosage: UNK, OTHER (EVERY OTHER DAY)
     Route: 065
     Dates: start: 2018

REACTIONS (6)
  - Blood sodium decreased [Not Recovered/Not Resolved]
  - Inappropriate schedule of product administration [Unknown]
  - Micturition frequency decreased [Not Recovered/Not Resolved]
  - Thirst [Not Recovered/Not Resolved]
  - Product dose omission [Unknown]
  - Pollakiuria [Not Recovered/Not Resolved]
